FAERS Safety Report 13988565 (Version 7)
Quarter: 2018Q3

REPORT INFORMATION
  Report Type: Report from Study
  Country: US (occurrence: US)
  Receive Date: 20170919
  Receipt Date: 20180803
  Transmission Date: 20181010
  Serious: Yes (Hospitalization)
  Sender: FDA-Public Use
  Company Number: US-ACTELION-A-US2016-136514

PATIENT
  Age: 85 Year
  Sex: Female

DRUGS (19)
  1. UPTRAVI [Suspect]
     Active Substance: SELEXIPAG
     Indication: PULMONARY ARTERIAL HYPERTENSION
     Dosage: 200 MCG, BID
     Route: 048
     Dates: start: 20160428
  2. ALBUTEROL. [Concomitant]
     Active Substance: ALBUTEROL
  3. CALTRATE [Concomitant]
     Active Substance: CALCIUM CARBONATE
  4. TYLENOL [Concomitant]
     Active Substance: ACETAMINOPHEN
  5. AMLODIPINE [Concomitant]
     Active Substance: AMLODIPINE BESYLATE
  6. POTASSIUM [Concomitant]
     Active Substance: POTASSIUM
  7. UPTRAVI [Suspect]
     Active Substance: SELEXIPAG
     Dosage: 1000 MCG, BID
     Route: 048
  8. OMEPRAZOLE. [Concomitant]
     Active Substance: OMEPRAZOLE
  9. ADCIRCA [Concomitant]
     Active Substance: TADALAFIL
     Dosage: 40 MG, QD
  10. ECOTRIN [Concomitant]
     Active Substance: ASPIRIN
  11. IRON [Concomitant]
     Active Substance: IRON
     Dosage: 320 MG, QD
  12. VITAMIN E [Concomitant]
     Active Substance: .ALPHA.-TOCOPHEROL
  13. SIMVASTATIN. [Concomitant]
     Active Substance: SIMVASTATIN
  14. FUROSEMIDE. [Concomitant]
     Active Substance: FUROSEMIDE
  15. METOPROLOL. [Concomitant]
     Active Substance: METOPROLOL
     Dosage: 50 MG, QD
  16. TORSEMIDE. [Concomitant]
     Active Substance: TORSEMIDE
     Dosage: 20 UNK, UNK
  17. UPTRAVI [Suspect]
     Active Substance: SELEXIPAG
     Dosage: 600 MCG, QAM, 400 MCG QPM
     Route: 048
     Dates: start: 20160427
  18. VALSARTAN. [Concomitant]
     Active Substance: VALSARTAN
     Dosage: 160 MG, BID
  19. METAMUCIL [Concomitant]
     Active Substance: PLANTAGO SEED

REACTIONS (17)
  - Aortic valve disease [Unknown]
  - Chills [Recovering/Resolving]
  - Transfusion [Recovering/Resolving]
  - Cardiac failure congestive [Recovering/Resolving]
  - Chronic obstructive pulmonary disease [Unknown]
  - Dyspnoea [Not Recovered/Not Resolved]
  - Concomitant disease progression [Unknown]
  - Anaemia [Unknown]
  - Condition aggravated [Unknown]
  - Red blood cell count decreased [Unknown]
  - Pulmonary arterial hypertension [Unknown]
  - Dizziness [Unknown]
  - Confusional state [Unknown]
  - Haemoglobin decreased [Unknown]
  - Haematocrit decreased [Unknown]
  - Pleural effusion [Unknown]
  - Cellulitis [Unknown]

NARRATIVE: CASE EVENT DATE: 20160506
